FAERS Safety Report 24063863 (Version 3)
Quarter: 2024Q3

REPORT INFORMATION
  Report Type: Spontaneous
  Country: JP (occurrence: JP)
  Receive Date: 20240709
  Receipt Date: 20240916
  Transmission Date: 20241017
  Serious: Yes (Disabling)
  Sender: MERCK
  Company Number: JP-MSD-M2024-26127

PATIENT
  Age: 8 Decade
  Sex: Male

DRUGS (4)
  1. KEYTRUDA [Suspect]
     Active Substance: PEMBROLIZUMAB
     Indication: Renal cell carcinoma stage IV
     Dosage: 200 MILLIGRAM, Q3W
     Route: 041
     Dates: start: 20231012, end: 20240516
  2. KEYTRUDA [Suspect]
     Active Substance: PEMBROLIZUMAB
     Dosage: 200 MILLIGRAM, Q3W
     Route: 041
     Dates: start: 202407
  3. AXITINIB [Concomitant]
     Active Substance: AXITINIB
     Indication: Renal cell carcinoma stage IV
     Dosage: 4 MILLIGRAM, BID
     Route: 048
     Dates: start: 20231012, end: 20240606
  4. AXITINIB [Concomitant]
     Active Substance: AXITINIB
     Dosage: 4 MILLIGRAM, BID
     Route: 048
     Dates: start: 202407

REACTIONS (1)
  - Adrenocorticotropic hormone deficiency [Recovering/Resolving]

NARRATIVE: CASE EVENT DATE: 20240516
